FAERS Safety Report 6180314-8 (Version None)
Quarter: 2009Q2

REPORT INFORMATION
  Report Type: 
  Country: None (occurrence: None)
  Receive Date: 20090504
  Receipt Date: 20090504
  Transmission Date: 20091009
  Serious: Yes (Death)
  Sender: FDA-Public Use
  Company Number: None

PATIENT
  Sex: Male

DRUGS (11)
  1. REVLIMID [Suspect]
     Indication: MYELODYSPLASTIC SYNDROME
     Dosage: 10MG DAILY ORAL
     Route: 048
     Dates: start: 20080729, end: 20080929
  2. REVLIMID [Suspect]
     Indication: MYELODYSPLASTIC SYNDROME
     Dosage: 10MG DAILY ORAL
     Route: 048
     Dates: start: 20081101
  3. MORPHINE SOLUTION [Concomitant]
  4. WARFARIN SODIUM [Concomitant]
  5. LUMIGAN EYE DROPS [Concomitant]
  6. TIMOLOL EYE DROPS [Concomitant]
  7. LISINOPRIL [Concomitant]
  8. FOSAMAX PLUS D [Concomitant]
  9. PROCRIT [Concomitant]
  10. GABAPENTIN [Concomitant]
  11. ETOPOSIDE [Concomitant]

REACTIONS (5)
  - COAGULOPATHY [None]
  - MYELODYSPLASTIC SYNDROME [None]
  - ONCOLOGIC COMPLICATION [None]
  - OVARIAN CANCER [None]
  - PYREXIA [None]
